FAERS Safety Report 11761234 (Version 2)
Quarter: 2019Q4

REPORT INFORMATION
  Report Type: Spontaneous
  Country: US (occurrence: US)
  Receive Date: 20151120
  Receipt Date: 20191022
  Transmission Date: 20200122
  Serious: Yes (Death, Hospitalization, Other)
  Sender: FDA-Public Use
  Company Number: US-009507513-1511USA010971

PATIENT
  Sex: Female
  Weight: 90.7 kg

DRUGS (4)
  1. METFORMIN [Concomitant]
     Active Substance: METFORMIN HYDROCHLORIDE
     Indication: TYPE 2 DIABETES MELLITUS
  2. LANTUS [Concomitant]
     Active Substance: INSULIN GLARGINE
     Indication: TYPE 2 DIABETES MELLITUS
  3. BYETTA [Suspect]
     Active Substance: EXENATIDE
     Dosage: 10 MICROGRAM, TWICE DAILY
     Dates: start: 20100627, end: 201308
  4. JANUVIA [Suspect]
     Active Substance: SITAGLIPTIN PHOSPHATE
     Indication: TYPE 2 DIABETES MELLITUS
     Dosage: 100 MILLIGRAM, ONCE DAILY
     Route: 048
     Dates: start: 20100215, end: 201006

REACTIONS (20)
  - Pancreatic carcinoma metastatic [Unknown]
  - Aortic arteriosclerosis [Unknown]
  - Rhinitis allergic [Unknown]
  - Pulmonary embolism [Unknown]
  - Death [Fatal]
  - Erythema multiforme [Unknown]
  - Adverse event [Unknown]
  - Hysterectomy [Unknown]
  - Gastric operation [Unknown]
  - Ulcer [Unknown]
  - Hiatus hernia [Unknown]
  - Diverticulum intestinal [Unknown]
  - Sleep apnoea syndrome [Unknown]
  - Antinuclear antibody negative [Unknown]
  - Anxiety [Unknown]
  - Haemorrhage [Unknown]
  - Deep vein thrombosis [Unknown]
  - Diabetes mellitus inadequate control [Unknown]
  - Limb injury [Unknown]
  - Asthma [Unknown]

NARRATIVE: CASE EVENT DATE: 201204
